FAERS Safety Report 18558247 (Version 1)
Quarter: 2020Q4

REPORT INFORMATION
  Report Type: Report from Study
  Country: GB (occurrence: GB)
  Receive Date: 20201130
  Receipt Date: 20201130
  Transmission Date: 20210114
  Serious: Yes (Other)
  Sender: FDA-Public Use
  Company Number: GB-JNJFOC-20201148694

PATIENT
  Age: 74 Year
  Sex: Male

DRUGS (1)
  1. ABIRATERONE ACETATE. [Suspect]
     Active Substance: ABIRATERONE ACETATE
     Indication: PROSTATE CANCER
     Route: 048
     Dates: start: 20200903

REACTIONS (4)
  - Visual impairment [Recovered/Resolved]
  - Dizziness [Recovered/Resolved]
  - Blood alkaline phosphatase increased [Not Recovered/Not Resolved]
  - Hot flush [Recovered/Resolved]

NARRATIVE: CASE EVENT DATE: 202011
